FAERS Safety Report 14896348 (Version 1)
Quarter: 2018Q2

REPORT INFORMATION
  Report Type: Other
  Country: LU (occurrence: LU)
  Receive Date: 20180515
  Receipt Date: 20180515
  Transmission Date: 20180711
  Serious: Yes (Hospitalization, Other)
  Sender: FDA-Public Use
  Company Number: LU-ASPEN-GLO2018LU004701

PATIENT
  Age: 83 Year
  Sex: Female
  Weight: 56.4 kg

DRUGS (2)
  1. DEXAMETHASONE. [Suspect]
     Active Substance: DEXAMETHASONE
     Indication: PLASMA CELL MYELOMA
     Dosage: 40 MG
     Route: 042
     Dates: start: 20180111, end: 20180327
  2. KYPROLIS [Suspect]
     Active Substance: CARFILZOMIB
     Indication: PLASMA CELL MYELOMA
     Dosage: 210 MG/M2
     Route: 041
     Dates: start: 20180111, end: 20180327

REACTIONS (1)
  - Haemolytic uraemic syndrome [Recovering/Resolving]

NARRATIVE: CASE EVENT DATE: 20180404
